FAERS Safety Report 23625509 (Version 2)
Quarter: 2024Q2

REPORT INFORMATION
  Report Type: Spontaneous
  Country: ES (occurrence: ES)
  Receive Date: 20240313
  Receipt Date: 20240611
  Transmission Date: 20240716
  Serious: Yes (Other)
  Sender: FDA-Public Use
  Company Number: ES-IPSEN Group, Research and Development-2024-03229

PATIENT
  Age: 41 Year
  Sex: Male

DRUGS (3)
  1. NIVOLUMAB [Suspect]
     Active Substance: NIVOLUMAB
     Indication: Renal cell carcinoma
     Dosage: UNK
     Dates: start: 202206
  2. CABOMETYX [Suspect]
     Active Substance: CABOZANTINIB S-MALATE
     Indication: Renal cell carcinoma
     Dates: start: 202209
  3. CABOMETYX [Suspect]
     Active Substance: CABOZANTINIB S-MALATE
     Dates: start: 202301

REACTIONS (5)
  - Vena cava thrombosis [Unknown]
  - Ascites [Unknown]
  - Rash pruritic [Unknown]
  - Nausea [Unknown]
  - Vomiting [Unknown]

NARRATIVE: CASE EVENT DATE: 20220901
